FAERS Safety Report 10033196 (Version 1)
Quarter: 2014Q1

REPORT INFORMATION
  Report Type: Spontaneous
  Country: US (occurrence: US)
  Receive Date: 20140324
  Receipt Date: 20140324
  Transmission Date: 20141002
  Serious: Yes (Hospitalization, Other)
  Sender: FDA-Public Use
  Company Number: US-GILEAD-2014-0097608

PATIENT
  Age: 42 Year
  Sex: Male

DRUGS (3)
  1. SOVALDI [Suspect]
     Indication: HEPATITIS C
     Dosage: UNK
     Route: 065
     Dates: start: 201401
  2. PEGINTERFERON ALFA [Concomitant]
     Dosage: UNK
     Dates: start: 201401
  3. RIBAVIRIN [Concomitant]
     Dosage: UNK
     Dates: start: 201401

REACTIONS (1)
  - Lung abscess [Unknown]
